FAERS Safety Report 7122210-5 (Version None)
Quarter: 2010Q4

REPORT INFORMATION
  Report Type: 
  Country: None (occurrence: None)
  Receive Date: 20101119
  Receipt Date: 20101119
  Transmission Date: 20110411
  Serious: Yes (Hospitalization)
  Sender: FDA-Public Use
  Company Number: None

PATIENT
  Age: 74 Year
  Sex: Female
  Weight: 64.2 kg

DRUGS (10)
  1. ESTRACE [Suspect]
     Indication: BREAST CANCER
     Dosage: (5) X 2MG = 10MG TID PO
     Route: 048
     Dates: start: 20100909, end: 20100917
  2. ESTRACE [Suspect]
  3. BENICAR HCT [Concomitant]
  4. SIMVASTATIN [Suspect]
  5. EQUATE MATURE MVI [Concomitant]
  6. CALCIUM [Concomitant]
  7. TYLENOL (CAPLET) [Concomitant]
  8. FISH OIL [Concomitant]
  9. AMLODIPINE [Concomitant]
  10. OXYCODONE HCL [Concomitant]

REACTIONS (6)
  - CONSTIPATION [None]
  - HYPERCALCAEMIA [None]
  - MENTAL STATUS CHANGES [None]
  - NAUSEA [None]
  - PAIN [None]
  - VOMITING [None]
